FAERS Safety Report 23615739 (Version 2)
Quarter: 2024Q2

REPORT INFORMATION
  Report Type: Spontaneous
  Country: US (occurrence: US)
  Receive Date: 20240311
  Receipt Date: 20240522
  Transmission Date: 20240716
  Serious: No
  Sender: FDA-Public Use
  Company Number: US-ELI_LILLY_AND_COMPANY-US202403005125

PATIENT
  Age: 48 Year
  Sex: Female

DRUGS (1)
  1. TALTZ [Suspect]
     Active Substance: IXEKIZUMAB
     Indication: Product used for unknown indication
     Dosage: 160 MG, SINGLE, LOADING DOSE
     Route: 058
     Dates: start: 20240224, end: 20240224

REACTIONS (3)
  - Fatigue [Unknown]
  - Upper respiratory tract infection [Unknown]
  - Injection site hypersensitivity [Recovered/Resolved]
